FAERS Safety Report 19409040 (Version 2)
Quarter: 2021Q2

REPORT INFORMATION
  Report Type: Spontaneous
  Country: US (occurrence: US)
  Receive Date: 20210613
  Receipt Date: 20210613
  Transmission Date: 20210717
  Serious: Yes (Death, Other)
  Sender: FDA-Public Use
  Company Number: US-PURDUE-USA-2020-0269708

PATIENT
  Age: 60 Year
  Sex: Male

DRUGS (3)
  1. OXYCODONE HCL TABLETS (RHODES 91?490) [Suspect]
     Active Substance: OXYCODONE HYDROCHLORIDE
     Dosage: 30 MG, Q12H
     Route: 048
     Dates: start: 20141117
  2. LISINOPRIL. [Concomitant]
     Active Substance: LISINOPRIL
     Indication: ESSENTIAL HYPERTENSION
     Dosage: 5 MG, DAILY
     Route: 048
  3. OXYCODONE HCL TABLETS (RHODES 91?490) [Suspect]
     Active Substance: OXYCODONE HYDROCHLORIDE
     Indication: BACK PAIN
     Dosage: 30 MG, Q6H
     Route: 048
     Dates: start: 20141117

REACTIONS (7)
  - Acute respiratory failure [Fatal]
  - Septic shock [Fatal]
  - Upper gastrointestinal haemorrhage [Fatal]
  - Drug dependence [Unknown]
  - Multiple organ dysfunction syndrome [Fatal]
  - Renal failure [Unknown]
  - Pneumonia [Fatal]

NARRATIVE: CASE EVENT DATE: 20180402
